FAERS Safety Report 9451124 (Version 1)
Quarter: 2013Q3

REPORT INFORMATION
  Report Type: Spontaneous
  Country: None (occurrence: US)
  Receive Date: 20130809
  Receipt Date: 20130809
  Transmission Date: 20140515
  Serious: Yes (Hospitalization)
  Sender: FDA-Public Use
  Company Number: US-BAXTER-2012BAX027116

PATIENT
  Sex: Female
  Weight: 59.93 kg

DRUGS (9)
  1. IFOSFAMIDE FOR INJECTION [Suspect]
     Indication: HODGKIN^S DISEASE
     Route: 042
     Dates: start: 20120829, end: 20120831
  2. IFOSFAMIDE FOR INJECTION [Suspect]
     Route: 042
     Dates: start: 20121023
  3. CELLTOP 100 MG/5 ML, SOLUTION INJECTABLE POUR PERFUSION [Suspect]
     Indication: HODGKIN^S DISEASE
     Route: 042
     Dates: start: 20120829, end: 20120831
  4. CELLTOP 100 MG/5 ML, SOLUTION INJECTABLE POUR PERFUSION [Suspect]
     Route: 042
     Dates: start: 20121023
  5. CARBOPLATIN [Suspect]
     Indication: HODGKIN^S DISEASE
     Route: 042
     Dates: start: 20120829, end: 20120831
  6. CARBOPLATIN [Suspect]
     Route: 042
     Dates: start: 20121023
  7. NEULASTA [Suspect]
     Indication: NEUTROPENIA
     Route: 058
     Dates: start: 20120904
  8. NEULASTA [Suspect]
     Route: 058
     Dates: start: 201210, end: 201210
  9. MESNA [Concomitant]
     Indication: PRODUCT USED FOR UNKNOWN INDICATION
     Route: 065
     Dates: start: 20120829, end: 20120831

REACTIONS (1)
  - Febrile neutropenia [Recovered/Resolved]
